FAERS Safety Report 24390313 (Version 5)
Quarter: 2024Q4

REPORT INFORMATION
  Report Type: Report from Study
  Country: US (occurrence: US)
  Receive Date: 20241003
  Receipt Date: 20241212
  Transmission Date: 20250115
  Serious: No
  Sender: ACADIA PHARMACEUTICALS
  Company Number: US-ACADIA PHARMACEUTICALS INC.-ACA-2024-PIM-005851

PATIENT
  Sex: Female

DRUGS (12)
  1. NUPLAZID [Suspect]
     Active Substance: PIMAVANSERIN TARTRATE
     Indication: Delusion
     Dosage: 34 MILLIGRAM, QD
     Route: 048
  2. NUPLAZID [Suspect]
     Active Substance: PIMAVANSERIN TARTRATE
     Indication: Hallucination
  3. NUPLAZID [Suspect]
     Active Substance: PIMAVANSERIN TARTRATE
     Indication: Parkinson^s disease psychosis
  4. AMLODIPINE BESYLATE [Concomitant]
     Active Substance: AMLODIPINE BESYLATE
     Dosage: 10 MILLIGRAM
  5. CARBIDOPA LEVODOPA [Concomitant]
     Active Substance: CARBIDOPA\LEVODOPA
     Dosage: 25-100MG
  6. NITROFURANTOIN [Concomitant]
     Active Substance: NITROFURANTOIN
     Dosage: 100 MILLIGRAM
  7. PANTOPRAZOLE [Concomitant]
     Active Substance: PANTOPRAZOLE
     Dosage: 40 MILLIGRAM
  8. RIVASTIGMINE [Concomitant]
     Active Substance: RIVASTIGMINE
     Dosage: PT2 4.6MG/24
  9. SOLIFENACIN [Concomitant]
     Active Substance: SOLIFENACIN
     Dosage: 5 MILLIGRAM
  10. SUCRALFATE [Concomitant]
     Active Substance: SUCRALFATE
     Dosage: 1 GRAM
  11. ATENOLOL [Concomitant]
     Active Substance: ATENOLOL
     Dosage: 50 MILLIGRAM
  12. LOSARTAN POTASSIUM [Concomitant]
     Active Substance: LOSARTAN POTASSIUM
     Dosage: 100 MILLIGRAM

REACTIONS (9)
  - Nightmare [Recovered/Resolved]
  - Memory impairment [Unknown]
  - Memory impairment [Not Recovered/Not Resolved]
  - Skin irritation [Not Recovered/Not Resolved]
  - Tremor [Not Recovered/Not Resolved]
  - COVID-19 [Not Recovered/Not Resolved]
  - Insomnia [Unknown]
  - Confusional state [Unknown]
  - Therapeutic product effect decreased [Unknown]
